FAERS Safety Report 22518550 (Version 1)
Quarter: 2023Q2

REPORT INFORMATION
  Report Type: Report from Study
  Country: US (occurrence: US)
  Receive Date: 20230605
  Receipt Date: 20230605
  Transmission Date: 20230721
  Serious: Yes (Death, Hospitalization)
  Sender: FDA-Public Use
  Company Number: US-ABBVIE-5180981

PATIENT
  Sex: Male

DRUGS (1)
  1. IMBRUVICA [Suspect]
     Active Substance: IBRUTINIB
     Indication: Mantle cell lymphoma
     Route: 048
     Dates: start: 20230508, end: 20230601

REACTIONS (6)
  - Lung disorder [Fatal]
  - Hospitalisation [Unknown]
  - Infection [Unknown]
  - Decreased appetite [Unknown]
  - Pleural effusion [Unknown]
  - Hypotension [Unknown]
